FAERS Safety Report 7250443-6 (Version None)
Quarter: 2011Q1

REPORT INFORMATION
  Report Type: 
  Country: None (occurrence: None)
  Receive Date: 20110128
  Receipt Date: 20110117
  Transmission Date: 20110831
  Serious: Yes (Other)
  Sender: FDA-Public Use
  Company Number: GR-ROCHE-754672

PATIENT
  Age: 59 Year
  Sex: Female

DRUGS (2)
  1. BEVACIZUMAB [Suspect]
     Indication: BREAST CANCER
     Dosage: SINCE 6 MONTHS
     Route: 065
  2. ZOMETA [Suspect]
     Indication: BREAST CANCER
     Dosage: SHORT PERIODS OF INTERRUPTION OF TREATMENT
     Route: 065
     Dates: start: 20060101

REACTIONS (1)
  - OSTEONECROSIS OF JAW [None]
